FAERS Safety Report 10551419 (Version 1)
Quarter: 2014Q4

REPORT INFORMATION
  Report Type: Spontaneous
  Country: US (occurrence: None)
  Receive Date: 20141028
  Receipt Date: 20141028
  Transmission Date: 20150529
  Serious: Yes (Other)
  Sender: FDA-Public Use
  Company Number: None

PATIENT
  Age: 67 Year
  Sex: Female
  Weight: 83.01 kg

DRUGS (1)
  1. NEOMYCIN, POLYMYXIN B SULFATES AND HYDROCORTISONE [Suspect]
     Active Substance: HYDROCORTISONE\NEOMYCIN SULFATE\POLYMYXIN B SULFATE
     Indication: EAR INFECTION
     Dosage: 4 DROPS EA. EAR  4X A DAY FOR 7-10 DAYS  (EAR)
     Dates: start: 20140519, end: 20140527

REACTIONS (2)
  - Deafness [None]
  - Ear discomfort [None]

NARRATIVE: CASE EVENT DATE: 20140519
